FAERS Safety Report 6314521-8 (Version None)
Quarter: 2009Q3

REPORT INFORMATION
  Report Type: 
  Country: None (occurrence: None)
  Receive Date: 20090819
  Receipt Date: 20090804
  Transmission Date: 20100115
  Serious: Yes (Other)
  Sender: FDA-Public Use
  Company Number: PHHY2009CA28187

PATIENT
  Sex: Female

DRUGS (3)
  1. ACLASTA [Suspect]
     Indication: OSTEOPOROSIS
     Dosage: UNK
     Route: 042
     Dates: start: 20090604, end: 20090604
  2. CLONAZEPAM [Concomitant]
     Dosage: 0.5 MG, UNK
  3. DITROPAN XL [Concomitant]
     Dosage: 5 MG, QD

REACTIONS (13)
  - ABASIA [None]
  - ACUPUNCTURE [None]
  - BONE PAIN [None]
  - DYSSTASIA [None]
  - FALL [None]
  - HEAD INJURY [None]
  - LIMB DISCOMFORT [None]
  - LOSS OF CONTROL OF LEGS [None]
  - PHYSIOTHERAPY [None]
  - SPINAL FRACTURE [None]
  - SUTURE INSERTION [None]
  - WALKING AID USER [None]
  - WHEELCHAIR USER [None]
